FAERS Safety Report 7637259-3 (Version None)
Quarter: 2011Q3

REPORT INFORMATION
  Report Type: 
  Country: None (occurrence: None)
  Receive Date: 20110726
  Receipt Date: 20110720
  Transmission Date: 20111222
  Serious: Yes (Other)
  Sender: FDA-Public Use
  Company Number: US-PFIZER INC-2011082191

PATIENT
  Sex: Male

DRUGS (2)
  1. VICODIN [Concomitant]
     Indication: BACK PAIN
     Dosage: UNK
     Dates: end: 20090101
  2. CHANTIX [Suspect]
     Indication: SMOKING CESSATION THERAPY
     Dosage: 0.5 MG AND 1 MG
     Dates: start: 20080826, end: 20090101

REACTIONS (4)
  - INSOMNIA [None]
  - COGNITIVE DISORDER [None]
  - NIGHTMARE [None]
  - DEPRESSION [None]
